FAERS Safety Report 19065012 (Version 1)
Quarter: 2021Q1

REPORT INFORMATION
  Report Type: Spontaneous
  Country: AU (occurrence: AU)
  Receive Date: 20210326
  Receipt Date: 20210326
  Transmission Date: 20210420
  Serious: Yes (Other)
  Sender: FDA-Public Use
  Company Number: AU-ASTRAZENECA-2021A201544

PATIENT
  Sex: Female

DRUGS (4)
  1. QUETIAPINE. [Suspect]
     Active Substance: QUETIAPINE
     Indication: PRODUCT USED FOR UNKNOWN INDICATION
     Dosage: MAXIMUM 300 MG (1 D)
     Route: 065
  2. ZUCLOPENTHIXOL ACETATE [Suspect]
     Active Substance: ZUCLOPENTHIXOL ACETATE
     Indication: SUICIDAL IDEATION
     Dosage: 4 INJECTIONS OF 100 MG, USUALLY EVERY 2?3 DAYS BUT THERE IS ALSO A GAP OF 4 DAYS BETWEEN INJECTIONS
     Route: 065
     Dates: start: 20201027
  3. OLANZAPINE. [Concomitant]
     Active Substance: OLANZAPINE
     Indication: PRODUCT USED FOR UNKNOWN INDICATION
     Route: 065
  4. ZUCLOPENTHIXOL ACETATE [Suspect]
     Active Substance: ZUCLOPENTHIXOL ACETATE
     Indication: ACUTE PSYCHOSIS
     Dosage: 4 INJECTIONS OF 100 MG, USUALLY EVERY 2?3 DAYS BUT THERE IS ALSO A GAP OF 4 DAYS BETWEEN INJECTIONS
     Route: 065
     Dates: start: 20201027

REACTIONS (4)
  - Agitation [Not Recovered/Not Resolved]
  - Drug ineffective [Not Recovered/Not Resolved]
  - Acute psychosis [Not Recovered/Not Resolved]
  - Patient isolation [Not Recovered/Not Resolved]
